FAERS Safety Report 21706933 (Version 1)
Quarter: 2022Q4

REPORT INFORMATION
  Report Type: Spontaneous
  Country: CH (occurrence: CH)
  Receive Date: 20221209
  Receipt Date: 20221209
  Transmission Date: 20230113
  Serious: Yes (Hospitalization)
  Sender: FDA-Public Use
  Company Number: None

PATIENT
  Age: 74 Year
  Sex: Male

DRUGS (16)
  1. FLUOROURACIL [Suspect]
     Active Substance: FLUOROURACIL
     Indication: Oesophageal squamous cell carcinoma
     Dosage: FLUOROURACIL TEVA  (FLUOROURACIL) ON JULY 18, 2022 500 MG INTRAVENOUS APPLICATION AND CUMULATIVELY 4
     Route: 042
     Dates: start: 20220718, end: 20220718
  2. FLUOROURACIL [Suspect]
     Active Substance: FLUOROURACIL
     Dosage: FLUOROURACIL TEVA  (FLUOROURACIL) ON 07/18/2022 500 MG INTRAVENOUS APPLICATION AND CUMULATIVELY 40..
     Route: 042
     Dates: start: 20220718, end: 20220719
  3. DESLORATADINE [Suspect]
     Active Substance: DESLORATADINE
     Indication: Product used for unknown indication
     Dosage: 5 MILLIGRAM DAILY; DESLORATADIN MEPHA  (DESLORATADINE) 5 MG 1-0-0-0, SINCE UNKNOWN DATE UNTIL 07/19/
     Route: 048
     Dates: end: 20220719
  4. LEUCOVORIN [Suspect]
     Active Substance: LEUCOVORIN
     Indication: Oesophageal squamous cell carcinoma
     Dosage: FOLINIC ACID 200 MG INTRAVENOUS APPLICATION ON 07/18/2022; TOTALLY
     Route: 042
     Dates: start: 20220718, end: 20220718
  5. ELOXATIN [Suspect]
     Active Substance: OXALIPLATIN
     Indication: Oesophageal squamous cell carcinoma
     Dosage: ELOXATIN  (OXALIPLATIN) 100 MG INTRAVENOUS APPLICATION ON JULY 18, 2022; TOTALLY, UNIT DOSE : 100MG,
     Route: 042
     Dates: start: 20220718, end: 20220718
  6. NALOXONE HYDROCHLORIDE\OXYCODONE HYDROCHLORIDE [Suspect]
     Active Substance: NALOXONE HYDROCHLORIDE\OXYCODONE HYDROCHLORIDE
     Indication: Product used for unknown indication
     Dosage: TARGIN  (OXYCODONE / NALOXONE) 5/2.5 MG DOSAGE AND TIME OF ADMINISTRATION NOT KNOWN, BEFORE RECORDIN
     Route: 048
  7. ASPIRIN [Concomitant]
     Active Substance: ASPIRIN
     Indication: Product used for unknown indication
     Dosage: 100 MILLIGRAM DAILY; ACETYLSALICYLIC ACID 100 MG 1-0-0, STOPPED ON HOSPITAL ADMISSION
     Route: 048
     Dates: end: 20220719
  8. EUTHYROX [Concomitant]
     Active Substance: LEVOTHYROXINE SODIUM
     Indication: Product used for unknown indication
     Dosage: EUTHYROX  (LEVOTHYROXINE) 25 MCG 1-0-0-0 3X/WEEK, INCREASED TO DAILY DURING HOSPITALIZATION
     Route: 048
  9. ESOMEPRAZOLE [Concomitant]
     Active Substance: ESOMEPRAZOLE
     Indication: Product used for unknown indication
     Dosage: 20 MILLIGRAM DAILY; NEXIUM  MUPS (ESOMEPRAZOLE) 20 MG 1-0-0-0, SWITCH TO PANTOPRAZOLE 40 MG 1-0-0-0
     Route: 048
     Dates: end: 20220719
  10. LYRICA [Concomitant]
     Active Substance: PREGABALIN
     Indication: Product used for unknown indication
     Dosage: 50 MILLIGRAM DAILY; LYRICA  (PREGABALIN) 50 MG 1-0-0 PAUSED IN JULY 2022, LATER (PROBABLY AUGUST 202
     Route: 048
     Dates: end: 202201
  11. TAMSULOSIN [Concomitant]
     Active Substance: TAMSULOSIN
     Indication: Product used for unknown indication
     Dosage: .4 MILLIGRAM DAILY; TAMSULOSIN SANDOZ  (TAMSULOSIN) 0.4 MG 0-0-1-0
     Route: 048
  12. FOLIC ACID [Concomitant]
     Active Substance: FOLIC ACID
     Indication: Product used for unknown indication
     Dosage: 5 MILLIGRAM DAILY; ACIDUM FOLICUM STREULI  (FOLIC ACID) 5 MG 1-0-0-0, STOPPED ON ADMISSION TO THE HO
     Route: 048
     Dates: end: 20220719
  13. VITAMINS [Concomitant]
     Active Substance: VITAMINS
     Indication: Product used for unknown indication
     Dosage: 1 DOSAGE FORMS DAILY; BECOZYM  FORTE (VITAMIN B COMPLEX) 1-0-0-0
     Route: 048
  14. THIAMINE HYDROCHLORIDE [Concomitant]
     Active Substance: THIAMINE HYDROCHLORIDE
     Indication: Product used for unknown indication
     Dosage: 300 MILLIGRAM DAILY; BENERVA  (THIAMIN) 300 MG 1-0-0-0
     Route: 048
  15. CYANOCOBALAMIN [Concomitant]
     Active Substance: CYANOCOBALAMIN
     Indication: Product used for unknown indication
     Dosage: VITARUBIN  (CYANOCOBALAMIN) INJECTION SOLUTION 1000 MCG/ML 1X/WEEK INTRAMUSCULARLY NOT KNOWN WHETHER
     Route: 030
  16. GLYCOPYRRONIUM\INDACATEROL [Concomitant]
     Active Substance: GLYCOPYRRONIUM\INDACATEROL
     Indication: Product used for unknown indication
     Dosage: 1 DOSAGE FORMS DAILY; ULTIBRO  BREEZHALER  (INDACATEROL / GLYCOPYRRONIUM) 110/50 MCG 1-0-0-0 INHALAT
     Route: 055

REACTIONS (3)
  - Disturbance in attention [Recovering/Resolving]
  - Toxic encephalopathy [Recovering/Resolving]
  - Cardiac failure chronic [Recovering/Resolving]

NARRATIVE: CASE EVENT DATE: 20220719
